FAERS Safety Report 9999752 (Version 2)
Quarter: 2014Q1

REPORT INFORMATION
  Report Type: Spontaneous
  Country: JP (occurrence: JP)
  Receive Date: 20140312
  Receipt Date: 20140318
  Transmission Date: 20141002
  Serious: Yes (Other)
  Sender: FDA-Public Use
  Company Number: JP-UCBSA-114277

PATIENT
  Age: 68 Year
  Sex: Female

DRUGS (17)
  1. NEUPRO [Suspect]
     Indication: PARKINSON^S DISEASE
     Dosage: UNKNOWN FREQUENCY
     Route: 061
     Dates: start: 20131122, end: 20131128
  2. NEUPRO [Suspect]
     Indication: PARKINSON^S DISEASE
     Dosage: UNKNOWN FREQUENCY
     Route: 061
     Dates: start: 20131129, end: 20131205
  3. NEUPRO [Suspect]
     Indication: PARKINSON^S DISEASE
     Dosage: UNKNOWN FREQUENCY
     Route: 061
     Dates: start: 20131206, end: 20131219
  4. NEUPRO [Suspect]
     Indication: PARKINSON^S DISEASE
     Dosage: UNKNOWN FREQUENCY
     Route: 061
     Dates: start: 20131220, end: 20131226
  5. NEUPRO [Suspect]
     Indication: PARKINSON^S DISEASE
     Dosage: UNKNOWN FREQUENCY
     Route: 061
     Dates: start: 20131227, end: 20140109
  6. NEUPRO [Suspect]
     Indication: PARKINSON^S DISEASE
     Dosage: UNKNOWN FREQUENCY
     Route: 061
     Dates: start: 20140110, end: 20140123
  7. NEUPRO [Suspect]
     Indication: PARKINSON^S DISEASE
     Dosage: UNKNOWN FREQUENCY
     Route: 061
     Dates: start: 20140124, end: 20140206
  8. NEUPRO [Suspect]
     Indication: PARKINSON^S DISEASE
     Dosage: UNKNOWN FREQUENCY
     Route: 061
     Dates: start: 20140207
  9. MENESIT [Suspect]
     Dosage: DAILY DOSE :200 MG
     Route: 048
     Dates: start: 201205, end: 20130523
  10. MENESIT [Suspect]
     Dosage: DAILY DOSE: 300 MG
     Route: 048
     Dates: start: 20130524, end: 20130822
  11. MENESIT [Suspect]
     Dosage: DAILY DOSE: 600 MG
     Route: 048
     Dates: start: 20130823, end: 20131024
  12. MENESIT [Suspect]
     Dosage: DAILY DOSE: 450 MG
     Route: 048
     Dates: start: 20131025, end: 20140220
  13. MENESIT [Suspect]
     Dosage: DAILY DOSE: 300 MG
     Route: 048
     Dates: start: 20140221
  14. SELEGILINE HYDROCHLORIDE [Concomitant]
     Dosage: 2.5 MG
     Dates: start: 20130628, end: 20130711
  15. SELEGILINE HYDROCHLORIDE [Concomitant]
     Dosage: 5 MG
     Dates: start: 20130712, end: 20140123
  16. SELEGILINE HYDROCHLORIDE [Concomitant]
     Dosage: 7.5 MG
     Dates: start: 20140124, end: 20140220
  17. SELEGILINE HYDROCHLORIDE [Concomitant]
     Dosage: 5 MG
     Dates: start: 20140221

REACTIONS (3)
  - Sudden onset of sleep [Not Recovered/Not Resolved]
  - Somnolence [Not Recovered/Not Resolved]
  - Oedema peripheral [Not Recovered/Not Resolved]
